FAERS Safety Report 11280065 (Version 1)
Quarter: 2015Q3

REPORT INFORMATION
  Report Type: Spontaneous
  Country: US (occurrence: US)
  Receive Date: 20150717
  Receipt Date: 20150717
  Transmission Date: 20151125
  Serious: No
  Sender: FDA-Public Use
  Company Number: US-GALDERMA-US15002413

PATIENT
  Age: 68 Year
  Sex: Female

DRUGS (9)
  1. CETAPHIL RESTORADERM WASH [Concomitant]
     Indication: THERAPEUTIC SKIN CARE TOPICAL
     Route: 061
     Dates: start: 2014
  2. SOOLANTRA [Suspect]
     Active Substance: IVERMECTIN
     Indication: ROSACEA
     Dosage: 1%
     Route: 061
     Dates: start: 20150424, end: 20150426
  3. GABAPENTIN. [Concomitant]
     Active Substance: GABAPENTIN
     Indication: NEUROPATHY PERIPHERAL
     Route: 048
  4. PROGESTERONE HORMONE REPLACEMENT COMPOUND [Concomitant]
     Indication: HORMONE REPLACEMENT THERAPY
     Route: 048
  5. AQUAPHOR GENTLE WASH AND SHAMPOO [Concomitant]
     Indication: THERAPEUTIC SKIN CARE TOPICAL
     Route: 061
     Dates: start: 2015
  6. ESTROGEN HORMONE REPLACEMENT COMPOUNDED [Concomitant]
     Indication: HORMONE REPLACEMENT THERAPY
     Route: 061
  7. TRIEST [Concomitant]
     Active Substance: ESTRADIOL\ESTRIOL\ESTRONE
     Dosage: 1.25
  8. NATURAL HRT [Concomitant]
  9. ZOLOFT [Concomitant]
     Active Substance: SERTRALINE HYDROCHLORIDE
     Dosage: 50 MG
     Route: 048

REACTIONS (8)
  - Cyst [Recovered/Resolved]
  - Activities of daily living impaired [Recovered/Resolved]
  - Erythema [Recovered/Resolved]
  - Herpes zoster [Recovered/Resolved]
  - Inappropriate schedule of drug administration [Recovered/Resolved]
  - Mouth ulceration [Recovered/Resolved]
  - Pruritus [Recovered/Resolved]
  - Pain [Recovered/Resolved]

NARRATIVE: CASE EVENT DATE: 20150424
